FAERS Safety Report 10045794 (Version 2)
Quarter: 2014Q2

REPORT INFORMATION
  Report Type: Report from Study
  Country: AU (occurrence: AU)
  Receive Date: 20140328
  Receipt Date: 20140414
  Transmission Date: 20141212
  Serious: Yes (Hospitalization)
  Sender: FDA-Public Use
  Company Number: AU-009507513-1403AUS012116

PATIENT
  Age: 62 Year
  Sex: Male
  Weight: 88 kg

DRUGS (13)
  1. TEMOZOLOMIDE [Suspect]
     Indication: GLIOBLASTOMA MULTIFORME
     Dosage: 75 MG/M2 ONE IN ONE DAY
     Route: 048
     Dates: start: 20140210, end: 20140302
  2. TEMOZOLOMIDE [Suspect]
     Dosage: 75 MG/M2,ONE IN ONE DAY
     Route: 048
     Dates: start: 20140311
  3. ABT-414 [Suspect]
     Indication: GLIOBLASTOMA MULTIFORME
     Dosage: 220 MG,ONE IN 2 WEEKS
     Route: 042
     Dates: start: 20140210
  4. KEPRA [Concomitant]
     Indication: CONVULSION
     Dosage: 1500 MG, QD
     Route: 048
     Dates: start: 20140123
  5. COVERSYL (PERINDOPRIL ARGININE) [Concomitant]
     Indication: HYPERTENSION
     Dosage: 2.5 MG, QD
     Route: 048
     Dates: start: 20130101
  6. SOTALOL HYDROCHLORIDE [Concomitant]
     Indication: ATRIAL FIBRILLATION
     Dosage: 80 MG, BID
     Route: 048
     Dates: start: 20140101
  7. DEXAMETHASONE [Concomitant]
     Indication: PROPHYLAXIS
     Dosage: 4 MG, BID
     Route: 048
     Dates: start: 20140210
  8. DEXAMETHASONE [Concomitant]
     Indication: APHASIA
     Dosage: 8 MG ,BID
     Route: 048
     Dates: start: 20140123, end: 20140209
  9. DEXAMETHASONE [Concomitant]
     Indication: PROPHYLAXIS
     Dosage: 3 IN 1 DAY
     Route: 047
     Dates: start: 20140208, end: 20140214
  10. DEXAMETHASONE [Concomitant]
     Dosage: 3 IN 1 DAY
     Route: 047
     Dates: start: 20140222, end: 20140228
  11. PANADOL [Concomitant]
     Indication: HEADACHE
     Dosage: 1 G, PRN
     Route: 048
     Dates: start: 20140209
  12. SOMAC [Concomitant]
     Indication: GASTROOESOPHAGEAL REFLUX PROPHYLAXIS
     Dosage: 40 MG, QD
     Route: 048
     Dates: start: 20140210
  13. TROPISETRON [Concomitant]
     Indication: PROPHYLAXIS
     Dosage: 5 MG, QD
     Route: 048
     Dates: start: 20140210

REACTIONS (6)
  - Hypotension [Recovered/Resolved]
  - Pyrexia [Recovered/Resolved]
  - Chills [Recovered/Resolved]
  - Pyrexia [Recovered/Resolved]
  - Chills [Recovered/Resolved]
  - Tremor [Recovered/Resolved]
